FAERS Safety Report 9594081 (Version 1)
Quarter: 2013Q3

REPORT INFORMATION
  Report Type: Spontaneous
  Country: US (occurrence: None)
  Receive Date: 20130930
  Receipt Date: 20130930
  Transmission Date: 20140515
  Serious: No
  Sender: FDA-Public Use
  Company Number: 1000047659

PATIENT
  Age: 81 Year
  Sex: Female

DRUGS (6)
  1. LINZESS [Suspect]
     Indication: IRRITABLE BOWEL SYNDROME
     Dosage: 290 MCG, 1 IN 1 D
     Route: 048
     Dates: start: 201307, end: 20130807
  2. LINZESS [Suspect]
     Indication: CONSTIPATION
     Dosage: 290 MCG, 1 IN 1 D
     Route: 048
     Dates: start: 201307, end: 20130807
  3. METOPROLOL [Concomitant]
  4. BABY ASPIRIN [Concomitant]
  5. GLYBURIDE [Concomitant]
  6. ALLOPURINOL [Concomitant]

REACTIONS (4)
  - Drug ineffective [None]
  - Abdominal distension [None]
  - Flatulence [None]
  - Abdominal pain [None]
